FAERS Safety Report 5557595-4 (Version None)
Quarter: 2007Q4

REPORT INFORMATION
  Report Type: 
  Country: None (occurrence: None)
  Receive Date: 20071214
  Receipt Date: 20071212
  Transmission Date: 20080405
  Serious: Yes (Hospitalization)
  Sender: FDA-Public Use
  Company Number: A0698608A

PATIENT
  Age: 64 Year
  Sex: Male

DRUGS (10)
  1. ADVAIR DISKUS 100/50 [Suspect]
     Indication: CHRONIC OBSTRUCTIVE PULMONARY DISEASE
     Dosage: 1PUFF TWICE PER DAY
     Route: 055
     Dates: start: 20000101
  2. DIGOXIN [Concomitant]
  3. FUROSEMIDE [Concomitant]
  4. PLAVIX [Concomitant]
  5. GLIMEPIRIDE [Concomitant]
  6. SIMVASTATIN [Concomitant]
  7. SPIRONOLACTONE [Concomitant]
  8. CARVEDILOL [Concomitant]
  9. ALLOPURINOL [Concomitant]
  10. COMBIVENT [Concomitant]

REACTIONS (7)
  - ADVERSE EVENT [None]
  - CARDIAC OPERATION [None]
  - HAEMOPTYSIS [None]
  - LUNG INFECTION [None]
  - LUNG LOBECTOMY [None]
  - LUNG NEOPLASM MALIGNANT [None]
  - PNEUMONIA [None]
